FAERS Safety Report 9592970 (Version 1)
Quarter: 2013Q3

REPORT INFORMATION
  Report Type: Spontaneous
  Country: US (occurrence: None)
  Receive Date: 20130930
  Receipt Date: 20130930
  Transmission Date: 20140515
  Serious: Yes (Other)
  Sender: FDA-Public Use
  Company Number: 1000046984

PATIENT
  Age: 55 Year
  Sex: Female

DRUGS (3)
  1. LINZESS [Suspect]
     Indication: CONSTIPATION
     Dosage: 290 MCG (290 MCG, 1 IN 1 D), ORAL
     Route: 048
     Dates: start: 20130712, end: 20130714
  2. NORVASC (AMLODIPINE BESILATE) (AMLODIPINE BESILATE) [Concomitant]
  3. ATENOLOL/CHLORTHALIDONE (ATENOLOL, CHLORTHALIDONE) (ATENOLOL, CHLORTHALIDONE) [Concomitant]

REACTIONS (7)
  - Nausea [None]
  - Diarrhoea [None]
  - Dizziness [None]
  - Arthralgia [None]
  - Headache [None]
  - Abdominal distension [None]
  - Hyperhidrosis [None]
